FAERS Safety Report 18724352 (Version 1)
Quarter: 2021Q1

REPORT INFORMATION
  Report Type: Spontaneous
  Country: US (occurrence: US)
  Receive Date: 20210111
  Receipt Date: 20210111
  Transmission Date: 20210419
  Serious: No
  Sender: FDA-Public Use
  Company Number: None

PATIENT
  Age: 65 Year
  Sex: Male

DRUGS (1)
  1. DONEPEZIL (DONEPEZIL HCL 10MG TAB) [Suspect]
     Active Substance: DONEPEZIL HYDROCHLORIDE
     Indication: DEMENTIA ALZHEIMER^S TYPE
     Route: 048
     Dates: start: 20151118, end: 20201215

REACTIONS (8)
  - Anal incontinence [None]
  - Fatigue [None]
  - Decreased appetite [None]
  - Vomiting [None]
  - Nausea [None]
  - Urinary incontinence [None]
  - Nocturia [None]
  - Somnolence [None]

NARRATIVE: CASE EVENT DATE: 20201215
